FAERS Safety Report 7478118-9 (Version None)
Quarter: 2011Q2

REPORT INFORMATION
  Report Type: 
  Country: None (occurrence: None)
  Receive Date: 20110513
  Receipt Date: 20110317
  Transmission Date: 20111010
  Serious: Yes (Hospitalization)
  Sender: FDA-Public Use
  Company Number: US-BAYER-2011-016915

PATIENT
  Sex: Female

DRUGS (2)
  1. NEXAVAR [Suspect]
     Dosage: 200 MG, BID
  2. NEXAVAR [Suspect]
     Indication: HEPATIC NEOPLASM MALIGNANT
     Dosage: 400 MG, BID

REACTIONS (5)
  - CONFUSIONAL STATE [None]
  - BLOOD COUNT ABNORMAL [None]
  - MENORRHAGIA [None]
  - BLOOD PRESSURE INCREASED [None]
  - HAEMATOCHEZIA [None]
